FAERS Safety Report 23669552 (Version 1)
Quarter: 2024Q1

REPORT INFORMATION
  Report Type: Spontaneous
  Country: US (occurrence: None)
  Receive Date: 20240324
  Receipt Date: 20240324
  Transmission Date: 20240410
  Serious: Yes (Death, Life-Threatening)
  Sender: FDA-Public Use
  Company Number: None

PATIENT
  Age: 45 Year
  Sex: Female
  Weight: 49 kg

DRUGS (1)
  1. SUCCINYLCHOLINE [Suspect]
     Active Substance: SUCCINYLCHOLINE
     Indication: Endotracheal intubation
     Dosage: OTHER FREQUENCY : ONCE;?
     Route: 040
     Dates: start: 20240221, end: 20240221

REACTIONS (3)
  - Hypercapnia [None]
  - Hyperthermia malignant [None]
  - Infection [None]

NARRATIVE: CASE EVENT DATE: 20240221
